FAERS Safety Report 11110977 (Version 1)
Quarter: 2015Q2

REPORT INFORMATION
  Report Type: Spontaneous
  Country: US (occurrence: US)
  Receive Date: 20150513
  Receipt Date: 20150513
  Transmission Date: 20150821
  Serious: No
  Sender: FDA-Public Use
  Company Number: US-ASTRAZENECA-2015SE42104

PATIENT
  Sex: Female

DRUGS (9)
  1. CRESTOR [Suspect]
     Active Substance: ROSUVASTATIN CALCIUM
     Indication: LOW DENSITY LIPOPROTEIN
     Route: 048
  2. AMIODARONE [Concomitant]
     Active Substance: AMIODARONE
  3. LEVOTHYROXINE [Concomitant]
     Active Substance: LEVOTHYROXINE
  4. VITAMIN D [Concomitant]
     Active Substance: CHOLECALCIFEROL
  5. NORVASC [Concomitant]
     Active Substance: AMLODIPINE BESYLATE
  6. CRESTOR [Suspect]
     Active Substance: ROSUVASTATIN CALCIUM
     Indication: BLOOD CHOLESTEROL ABNORMAL
     Route: 048
  7. SYNTHROID [Concomitant]
     Active Substance: LEVOTHYROXINE SODIUM
  8. BEMICAN/HCTZ [Concomitant]
  9. CALCIUM MAGNESIUM PLUS [Concomitant]

REACTIONS (5)
  - Throat irritation [Unknown]
  - Intentional product misuse [Unknown]
  - Dysphagia [Unknown]
  - Myalgia [Unknown]
  - Nausea [Unknown]
